FAERS Safety Report 8447112-3 (Version None)
Quarter: 2012Q2

REPORT INFORMATION
  Report Type: 
  Country: None (occurrence: None)
  Receive Date: 20120619
  Receipt Date: 20111010
  Transmission Date: 20120825
  Serious: No
  Sender: FDA-Public Use
  Company Number: US-PFIZER INC-K201101199

PATIENT
  Sex: Female
  Weight: 90.703 kg

DRUGS (4)
  1. LEVOXYL [Suspect]
     Indication: THYROID DISORDER
     Dosage: 50 UG, 1X/DAY
     Route: 048
     Dates: start: 19910101
  2. LEVOXYL [Suspect]
     Dosage: 25 UG, 1X/DAY
     Route: 048
     Dates: start: 20070101
  3. TRAMADOL [Concomitant]
     Indication: HEADACHE
     Dosage: ^500/50^ MG, Q4H
     Route: 048
  4. HYDROCODONE [Concomitant]
     Indication: HEADACHE
     Dosage: ^500/50^ MG, Q4H
     Route: 048

REACTIONS (1)
  - DRUG HYPERSENSITIVITY [None]
